FAERS Safety Report 23102820 (Version 2)
Quarter: 2024Q1

REPORT INFORMATION
  Report Type: Report from Study
  Country: US (occurrence: US)
  Receive Date: 20231025
  Receipt Date: 20240315
  Transmission Date: 20240410
  Serious: Yes (Hospitalization, Other)
  Sender: FDA-Public Use
  Company Number: US-UCBSA-2022008778

PATIENT
  Age: 55 Year
  Sex: Male

DRUGS (3)
  1. LACOSAMIDE [Suspect]
     Active Substance: LACOSAMIDE
     Indication: Epilepsy
     Dosage: 150 MILLIGRAM, 2X/DAY (BID)
  2. LACOSAMIDE [Suspect]
     Active Substance: LACOSAMIDE
     Indication: Seizure
     Dosage: 1.5 TABLET OF 150MG, 2X/DAY (BID)
     Dates: start: 202201
  3. LACOSAMIDE [Suspect]
     Active Substance: LACOSAMIDE
     Dosage: 150MG 2 TABLET EVERY MORNING AND ? TABLET IN EVENING THIS WOULD BE MONDAY, WEDNESDAY, FRIDAY  ? TABL

REACTIONS (5)
  - Seizure [Recovering/Resolving]
  - Upper limb fracture [Recovering/Resolving]
  - Wrong technique in product usage process [Unknown]
  - Overdose [Unknown]
  - Off label use [Unknown]

NARRATIVE: CASE EVENT DATE: 20220101
